FAERS Safety Report 25424761 (Version 1)
Quarter: 2025Q2

REPORT INFORMATION
  Report Type: Report from Study
  Country: US (occurrence: US)
  Receive Date: 20250611
  Receipt Date: 20250611
  Transmission Date: 20250716
  Serious: Yes (Hospitalization, Other)
  Sender: ABBVIE
  Company Number: US-ABBVIE-6319083

PATIENT
  Sex: Male

DRUGS (1)
  1. RINVOQ [Suspect]
     Active Substance: UPADACITINIB
     Indication: Pyoderma gangrenosum
     Dosage: STRENGTH 30 MG
     Route: 048

REACTIONS (2)
  - Pulmonary thrombosis [Unknown]
  - Product use in unapproved indication [Unknown]
